FAERS Safety Report 24361543 (Version 1)
Quarter: 2024Q3

REPORT INFORMATION
  Report Type: Report from Study
  Country: CA (occurrence: CA)
  Receive Date: 20240925
  Receipt Date: 20240925
  Transmission Date: 20241017
  Serious: Yes (Other)
  Sender: TAKEDA
  Company Number: CA-TAKEDA-CA202005891

PATIENT
  Age: 39 Year
  Sex: Female
  Weight: 76.2 kg

DRUGS (9)
  1. HUMAN IMMUNOGLOBULIN G [Suspect]
     Active Substance: HUMAN IMMUNOGLOBULIN G
     Indication: Primary immunodeficiency syndrome
     Dosage: 15 GRAM, 1/WEEK
     Route: 058
  2. HUMAN IMMUNOGLOBULIN G [Suspect]
     Active Substance: HUMAN IMMUNOGLOBULIN G
     Indication: Immunodeficiency common variable
     Dosage: 14 GRAM, 1/WEEK
     Route: 065
  3. HUMAN IMMUNOGLOBULIN G [Suspect]
     Active Substance: HUMAN IMMUNOGLOBULIN G
     Indication: Bacterial infection
     Dosage: 15 GRAM, 1/WEEK
     Route: 050
     Dates: start: 20191125
  4. HUMAN IMMUNOGLOBULIN G [Suspect]
     Active Substance: HUMAN IMMUNOGLOBULIN G
     Dosage: 14 GRAM, 1/WEEK
     Route: 058
  5. HUMAN IMMUNOGLOBULIN G [Suspect]
     Active Substance: HUMAN IMMUNOGLOBULIN G
     Dosage: 14 GRAM, 1/WEEK
     Route: 050
  6. TYLENOL WITH CODEINE [Concomitant]
     Active Substance: ACETAMINOPHEN\CODEINE PHOSPHATE
     Dosage: 3 DOSAGE FORM
     Route: 065
  7. ELIDEL [Concomitant]
     Active Substance: PIMECROLIMUS
     Dosage: UNK
     Route: 065
  8. TYLENOL [Concomitant]
     Active Substance: ACETAMINOPHEN
     Indication: Headache
     Dosage: UNK
     Route: 065
  9. PREDNISONE [Concomitant]
     Active Substance: PREDNISONE
     Indication: Haemolytic anaemia
     Dosage: UNK
     Route: 065

REACTIONS (16)
  - Lower respiratory tract infection [Unknown]
  - Self-consciousness [Not Recovered/Not Resolved]
  - Skin mass [Recovered/Resolved]
  - COVID-19 [Recovered/Resolved]
  - Viral infection [Unknown]
  - Pharyngitis streptococcal [Unknown]
  - Tooth disorder [Unknown]
  - Product use in unapproved indication [Unknown]
  - Upper respiratory tract infection [Unknown]
  - Jaundice [Unknown]
  - Infusion site haemorrhage [Unknown]
  - Infusion site induration [Unknown]
  - Rash [Recovered/Resolved]
  - Pain [Not Recovered/Not Resolved]
  - Diarrhoea [Not Recovered/Not Resolved]
  - Urticaria [Not Recovered/Not Resolved]

NARRATIVE: CASE EVENT DATE: 20191125
